FAERS Safety Report 19359566 (Version 1)
Quarter: 2021Q2

REPORT INFORMATION
  Report Type: Spontaneous
  Country: JP (occurrence: JP)
  Receive Date: 20210602
  Receipt Date: 20210602
  Transmission Date: 20210717
  Serious: Yes (Other)
  Sender: FDA-Public Use
  Company Number: JP-HRARD-2021000445

PATIENT
  Age: 27 Year
  Sex: Female
  Weight: 65 kg

DRUGS (7)
  1. METYRAPONE [Suspect]
     Active Substance: METYRAPONE
  2. METYRAPONE [Suspect]
     Active Substance: METYRAPONE
  3. METYRAPONE [Suspect]
     Active Substance: METYRAPONE
  4. METYRAPONE [Suspect]
     Active Substance: METYRAPONE
  5. TRILOSTANE [Concomitant]
     Active Substance: TRILOSTANE
  6. HYDROCORTISONE. [Concomitant]
     Active Substance: HYDROCORTISONE
  7. HYDROCORTISONE. [Concomitant]
     Active Substance: HYDROCORTISONE

REACTIONS (6)
  - Abdominal discomfort [Unknown]
  - Dizziness [Unknown]
  - Hypokalaemia [Unknown]
  - Acne [Unknown]
  - Oedema [Unknown]
  - Nausea [Unknown]
